FAERS Safety Report 20702493 (Version 1)
Quarter: 2022Q2

REPORT INFORMATION
  Report Type: Spontaneous
  Country: US (occurrence: US)
  Receive Date: 20220412
  Receipt Date: 20220412
  Transmission Date: 20220721
  Serious: No
  Sender: FDA-Public Use
  Company Number: US-GALDERMA-US2022003786

PATIENT

DRUGS (4)
  1. PROACTIV MD ADAPALENE ACNE TREATMENT [Suspect]
     Active Substance: ADAPALENE
     Indication: Skin discolouration
     Dosage: 1 DOSAGE FORM, QD
     Route: 061
     Dates: start: 20220317, end: 20220320
  2. Proactiv MD Ultra Gentle Cleanser [Concomitant]
     Indication: Skin discolouration
     Dosage: 1 DOSAGE FORM, BID
     Route: 061
     Dates: start: 20220317, end: 20220320
  3. Proactiv MD Ultra Hydrating Moisturizer [Concomitant]
     Indication: Skin discolouration
     Dosage: 1 DOSAGE FORM, BID
     Route: 061
     Dates: start: 20220317, end: 20220320
  4. Proactiv Post Acne Scar Gel [Concomitant]
     Indication: Skin discolouration
     Dosage: 1 DOSAGE FORM, BID
     Route: 061
     Dates: start: 20220317, end: 20220320

REACTIONS (5)
  - Dry skin [Recovering/Resolving]
  - Skin burning sensation [Recovering/Resolving]
  - Eyelid irritation [Recovering/Resolving]
  - Skin exfoliation [Recovering/Resolving]
  - Product use in unapproved indication [Recovered/Resolved]

NARRATIVE: CASE EVENT DATE: 20220317
